FAERS Safety Report 4641249-2 (Version None)
Quarter: 2005Q2

REPORT INFORMATION
  Report Type: 
  Country: None (occurrence: None)
  Receive Date: 20050419
  Receipt Date: 20050406
  Transmission Date: 20051028
  Serious: No
  Sender: FDA-Public Use
  Company Number: 05P-163-0296065-00

PATIENT
  Age: 31 Year
  Sex: Male

DRUGS (3)
  1. NORVIR [Suspect]
     Indication: HIV INFECTION
     Dosage: 100 MG, 2 IN 1 D, ORAL
     Route: 048
     Dates: start: 20041124, end: 20041203
  2. ABACAVIR SULFATE + LAMIVUDINE [Suspect]
     Indication: HIV INFECTION
     Dosage: 1 TABLET, PER ORAL
     Route: 048
     Dates: start: 20041124, end: 20041203
  3. FOSAMPRENAVIR [Suspect]
     Indication: HIV INFECTION
     Dosage: 1400 MG, 1 IN 1 D, PER ORAL
     Route: 048
     Dates: start: 20041124, end: 20041203

REACTIONS (5)
  - DRUG HYPERSENSITIVITY [None]
  - MYALGIA [None]
  - NAUSEA [None]
  - PAIN IN EXTREMITY [None]
  - STEVENS-JOHNSON SYNDROME [None]
